FAERS Safety Report 8758885 (Version 3)
Quarter: 2012Q4

REPORT INFORMATION
  Report Type: 
  Country: CA (occurrence: CA)
  Receive Date: 20120829
  Receipt Date: 20120913
  Transmission Date: 20130627
  Serious: Yes (Other)
  Sender: FDA-Public Use
  Company Number: PHHY2011CA36895

PATIENT
  Sex: Female

DRUGS (6)
  1. EXJADE [Suspect]
     Indication: THALASSAEMIA
     Dosage: 375 mg, UNK
     Route: 048
  2. EXJADE [Suspect]
     Indication: MYELODYSPLASTIC SYNDROME
     Dosage: 500 mg, daily
     Route: 048
     Dates: start: 2009
  3. EXJADE [Suspect]
     Indication: IRON OVERLOAD
     Dosage: 375 mg, Unk
     Route: 048
  4. EXJADE [Suspect]
     Dosage: 125 mg, UNK
     Route: 048
  5. EXJADE [Suspect]
     Dosage: 250 mg, daily
     Route: 048
     Dates: start: 2009, end: 201204
  6. EXJADE [Suspect]
     Dosage: UNK

REACTIONS (7)
  - Pruritus [Recovered/Resolved]
  - Mass [Unknown]
  - Pigmentation disorder [Unknown]
  - Dermatitis allergic [Unknown]
  - Decreased appetite [Not Recovered/Not Resolved]
  - Rash generalised [Recovered/Resolved]
  - Blood iron increased [Not Recovered/Not Resolved]
